FAERS Safety Report 6573382-2 (Version None)
Quarter: 2010Q1

REPORT INFORMATION
  Report Type: 
  Country: None (occurrence: None)
  Receive Date: 20100204
  Receipt Date: 20100204
  Transmission Date: 20100710
  Serious: Yes (Other)
  Sender: FDA-Public Use
  Company Number: None

PATIENT
  Age: 29 Year
  Sex: Female
  Weight: 63.5036 kg

DRUGS (1)
  1. ENPRESSE-28 [Suspect]
     Indication: CONTRACEPTION
     Dosage: 28 TABLET
     Dates: start: 20091101, end: 20100119

REACTIONS (3)
  - CHEST PAIN [None]
  - HEADACHE [None]
  - MIGRAINE [None]
